FAERS Safety Report 17578144 (Version 2)
Quarter: 2020Q2

REPORT INFORMATION
  Report Type: Spontaneous
  Country: BE (occurrence: BE)
  Receive Date: 20200324
  Receipt Date: 20200403
  Transmission Date: 20200713
  Serious: Yes (Hospitalization)
  Sender: FDA-Public Use
  Company Number: BE-ASTRAZENECA-2020SE38106

PATIENT
  Sex: Female
  Weight: 97.4 kg

DRUGS (10)
  1. TOTALIP [Suspect]
     Active Substance: ATORVASTATIN
     Indication: HYPERCHOLESTEROLAEMIA
     Route: 048
     Dates: start: 20190911, end: 20200211
  2. EZETIMIBE. [Suspect]
     Active Substance: EZETIMIBE
     Indication: HYPERCHOLESTEROLAEMIA
     Route: 065
     Dates: start: 20190124, end: 20200212
  3. CYMBALTA [Concomitant]
     Active Substance: DULOXETINE HYDROCHLORIDE
     Route: 065
     Dates: start: 201811
  4. GAMBARAN [Concomitant]
     Active Substance: NABUMETONE
     Route: 065
     Dates: start: 201811
  5. NOBITEN [Concomitant]
     Active Substance: NEBIVOLOL
     Route: 065
     Dates: start: 201811
  6. PANTOZOL [Concomitant]
     Active Substance: PANTOPRAZOLE SODIUM
     Route: 065
     Dates: start: 202002
  7. CRESTOR [Suspect]
     Active Substance: ROSUVASTATIN CALCIUM
     Indication: HYPERCHOLESTEROLAEMIA
     Route: 048
     Dates: start: 2003, end: 20181102
  8. L-THYROXINE [Concomitant]
     Active Substance: LEVOTHYROXINE
     Dosage: CHRISTIAENS 75 ???G, TABLETS, 1 DF DAILY.
     Route: 065
     Dates: start: 202002
  9. METFORMAX [Concomitant]
     Active Substance: METFORMIN HYDROCHLORIDE
     Route: 065
     Dates: start: 201811
  10. METFORMAX [Concomitant]
     Active Substance: METFORMIN HYDROCHLORIDE
     Dosage: METFORMIN GENERIC
     Route: 065
     Dates: start: 201811

REACTIONS (5)
  - Hypoxia [Recovering/Resolving]
  - Peripancreatic fluid collection [Recovering/Resolving]
  - Pancreatitis acute [Recovered/Resolved]
  - Hypocalcaemia [Recovering/Resolving]
  - Pancreatitis relapsing [Recovering/Resolving]

NARRATIVE: CASE EVENT DATE: 20181102
